FAERS Safety Report 7080344-8 (Version None)
Quarter: 2010Q4

REPORT INFORMATION
  Report Type: 
  Country: None (occurrence: None)
  Receive Date: 20101022
  Receipt Date: 20101015
  Transmission Date: 20110411
  Serious: Yes (Death)
  Sender: FDA-Public Use
  Company Number: 2010EU005440

PATIENT
  Age: 44 Year
  Sex: Male

DRUGS (5)
  1. PROGRAF [Suspect]
     Indication: LIVER TRANSPLANT
     Dosage: 14 MG, /D, ORAL
     Route: 048
     Dates: start: 20081203, end: 20090211
  2. CELLCEPT [Suspect]
     Indication: LIVER TRANSPLANT
     Dosage: 1 G, /D, ORAL
     Route: 048
     Dates: start: 20081201, end: 20090116
  3. PREDNISONE [Suspect]
     Indication: LIVER TRANSPLANT
     Dosage: 10 MG, /D, ORAL
     Route: 048
     Dates: start: 20081204, end: 20090214
  4. OMEPRAZOLE [Concomitant]
  5. KEPPRA [Concomitant]

REACTIONS (3)
  - CEREBRAL TOXOPLASMOSIS [None]
  - CYTOMEGALOVIRUS GASTROINTESTINAL INFECTION [None]
  - PNEUMONIA TOXOPLASMAL [None]
